FAERS Safety Report 11273934 (Version 2)
Quarter: 2015Q3

REPORT INFORMATION
  Report Type: Spontaneous
  Country: US (occurrence: US)
  Receive Date: 20150715
  Receipt Date: 20150813
  Transmission Date: 20151125
  Serious: No
  Sender: FDA-Public Use
  Company Number: US-PFIZER INC-2015231699

PATIENT
  Age: 69 Year
  Sex: Male

DRUGS (3)
  1. CYTARABINE. [Suspect]
     Active Substance: CYTARABINE
     Indication: ACUTE MYELOID LEUKAEMIA
     Dosage: 100 MG/M2, CYCLIC, (D1-7)
     Route: 042
     Dates: start: 20150521
  2. CYTARABINE. [Suspect]
     Active Substance: CYTARABINE
     Dosage: 2000 MG/M2, CYCLIC, (D1-5)
     Route: 042
  3. IDARUBICIN HCL [Suspect]
     Active Substance: IDARUBICIN HYDROCHLORIDE
     Indication: ACUTE MYELOID LEUKAEMIA
     Dosage: 12 MG/M2, CYCLIC, (D1-3)
     Route: 042
     Dates: start: 20150521

REACTIONS (2)
  - Acute myeloid leukaemia [Unknown]
  - Disease progression [Unknown]
